FAERS Safety Report 5730907-4 (Version None)
Quarter: 2008Q2

REPORT INFORMATION
  Report Type: 
  Country: None (occurrence: None)
  Receive Date: 20080502
  Receipt Date: 20080422
  Transmission Date: 20081010
  Serious: Yes (Other)
  Sender: FDA-Public Use
  Company Number: 2008BI008131

PATIENT
  Sex: Female

DRUGS (1)
  1. AVONEX [Suspect]
     Indication: MULTIPLE SCLEROSIS
     Dosage: 30 UG; QW; IM
     Route: 030
     Dates: start: 20010606, end: 20070701

REACTIONS (5)
  - CONDITION AGGRAVATED [None]
  - DRUG SPECIFIC ANTIBODY PRESENT [None]
  - MALIGNANT MELANOMA [None]
  - MULTIPLE SCLEROSIS [None]
  - OPTIC NEURITIS [None]
